FAERS Safety Report 25115449 (Version 1)
Quarter: 2025Q1

REPORT INFORMATION
  Report Type: Spontaneous
  Country: US (occurrence: US)
  Receive Date: 20250324
  Receipt Date: 20250324
  Transmission Date: 20250408
  Serious: Yes (Hospitalization)
  Sender: JOHNSON AND JOHNSON
  Company Number: US-JNJFOC-20250342596

PATIENT
  Age: 71 Year
  Sex: Female
  Weight: 50 kg

DRUGS (1)
  1. CARVYKTI [Suspect]
     Active Substance: CILTACABTAGENE AUTOLEUCEL
     Indication: Product used for unknown indication
     Dates: start: 20241223, end: 20241223

REACTIONS (2)
  - Seizure [Recovered/Resolved]
  - Cytokine release syndrome [Unknown]
